FAERS Safety Report 24874591 (Version 3)
Quarter: 2025Q3

REPORT INFORMATION
  Report Type: Report from Study
  Country: US (occurrence: US)
  Receive Date: 20250122
  Receipt Date: 20250801
  Transmission Date: 20251020
  Serious: Yes (Hospitalization, Other)
  Sender: TAKEDA
  Company Number: US-TAKEDA-2025TUS006677

PATIENT
  Sex: Male

DRUGS (21)
  1. FRUQUINTINIB [Suspect]
     Active Substance: FRUQUINTINIB
     Indication: Colon cancer
  2. FRUQUINTINIB [Suspect]
     Active Substance: FRUQUINTINIB
  3. FRUQUINTINIB [Suspect]
     Active Substance: FRUQUINTINIB
  4. ACETAMINOPHEN AND CODEINE [Concomitant]
     Active Substance: ACETAMINOPHEN\CODEINE PHOSPHATE
  5. ALLOPURINOL [Concomitant]
     Active Substance: ALLOPURINOL
  6. AMIODARONE [Concomitant]
     Active Substance: AMIODARONE
  7. DULOXETINE [Concomitant]
     Active Substance: DULOXETINE
  8. FARXIGA [Concomitant]
     Active Substance: DAPAGLIFLOZIN PROPANEDIOL
  9. FLOMAX [Concomitant]
     Active Substance: TAMSULOSIN HYDROCHLORIDE
  10. GABAPENTIN [Concomitant]
     Active Substance: GABAPENTIN
  11. LACOSAMIDE [Concomitant]
     Active Substance: LACOSAMIDE
  12. LEVETIRACETAM [Concomitant]
     Active Substance: LEVETIRACETAM
  13. LORAZEPAM [Concomitant]
     Active Substance: LORAZEPAM
  14. METOPROLOL TARTRATE [Concomitant]
     Active Substance: METOPROLOL TARTRATE
  15. MOUNJARO [Concomitant]
     Active Substance: TIRZEPATIDE
  16. OMEPRAZOLE [Concomitant]
     Active Substance: OMEPRAZOLE
  17. ZOFRAN [Concomitant]
     Active Substance: ONDANSETRON HYDROCHLORIDE
  18. TOPROL XL [Concomitant]
     Active Substance: METOPROLOL SUCCINATE
  19. TRESIBA [Concomitant]
     Active Substance: INSULIN DEGLUDEC
  20. TAMSULOSIN [Concomitant]
     Active Substance: TAMSULOSIN
  21. ONDANSETRON [Concomitant]
     Active Substance: ONDANSETRON

REACTIONS (2)
  - Renal failure [Not Recovered/Not Resolved]
  - Somnolence [Not Recovered/Not Resolved]
